FAERS Safety Report 5827868-6 (Version None)
Quarter: 2008Q3

REPORT INFORMATION
  Report Type: 
  Country: None (occurrence: None)
  Receive Date: 20080730
  Receipt Date: 20080718
  Transmission Date: 20090109
  Serious: Yes (Other)
  Sender: FDA-Public Use
  Company Number: US-PFIZER INC-2008048122

PATIENT
  Sex: Male

DRUGS (4)
  1. XANAX [Suspect]
     Indication: ANXIETY
  2. GABAPENTIN [Suspect]
  3. LEVAQUIN [Suspect]
  4. METFORMIN HCL [Suspect]

REACTIONS (8)
  - ANXIETY [None]
  - DRUG WITHDRAWAL SYNDROME [None]
  - DYSKINESIA [None]
  - PAIN [None]
  - POLLAKIURIA [None]
  - PROSTATITIS [None]
  - PURPURA [None]
  - TINNITUS [None]
